FAERS Safety Report 4429052-X (Version None)
Quarter: 2004Q3

REPORT INFORMATION
  Report Type: 
  Country: None (occurrence: None)
  Receive Date: 20040818
  Receipt Date: 20040811
  Transmission Date: 20050211
  Serious: Yes (Other)
  Sender: FDA-Public Use
  Company Number: GB-MERCK-0408GBR00108

PATIENT
  Age: 71 Year
  Sex: Female

DRUGS (9)
  1. ACETAMINOPHEN AND CODEINE PHOSPHATE [Concomitant]
     Route: 065
  2. ASPIRIN [Concomitant]
     Indication: MYOCARDIAL ISCHAEMIA
     Route: 048
  3. ATENOLOL [Concomitant]
     Indication: MYOCARDIAL ISCHAEMIA
     Route: 048
  4. BENDROFLUMETHIAZIDE [Concomitant]
     Route: 065
  5. ZETIA [Suspect]
     Indication: HYPERLIPIDAEMIA
     Route: 048
     Dates: start: 20040721, end: 20040723
  6. FERROUS SULFATE [Concomitant]
     Route: 065
  7. COZAAR [Concomitant]
     Indication: HYPERTENSION
     Route: 048
  8. NITROGLYCERIN [Concomitant]
     Route: 065
  9. OMEPRAZOLE [Concomitant]
     Route: 048

REACTIONS (1)
  - DYSPNOEA [None]
